FAERS Safety Report 23767713 (Version 3)
Quarter: 2024Q2

REPORT INFORMATION
  Report Type: Spontaneous
  Country: US (occurrence: US)
  Receive Date: 20240422
  Receipt Date: 20240507
  Transmission Date: 20240715
  Serious: Yes (Hospitalization)
  Sender: FDA-Public Use
  Company Number: US-GSKCCFUS-Case-01987540_AE-110344

PATIENT
  Age: 6 Decade
  Sex: Female

DRUGS (1)
  1. JEMPERLI [Suspect]
     Active Substance: DOSTARLIMAB-GXLY
     Indication: Endometrial cancer
     Dosage: 500 MG
     Route: 042

REACTIONS (7)
  - Rash maculo-papular [Recovering/Resolving]
  - Photosensitivity reaction [Unknown]
  - Transaminases increased [Unknown]
  - Dermatitis [Unknown]
  - Myalgia [Unknown]
  - Myositis [Unknown]
  - Skin toxicity [Unknown]
